FAERS Safety Report 11017432 (Version 2)
Quarter: 2015Q2

REPORT INFORMATION
  Report Type: Spontaneous
  Country: US (occurrence: US)
  Receive Date: 20150412
  Receipt Date: 20150525
  Transmission Date: 20150821
  Serious: No
  Sender: FDA-Public Use
  Company Number: US-JNJFOC-20130114668

PATIENT
  Age: 26 Year
  Sex: Female
  Weight: 56.7 kg

DRUGS (2)
  1. ORTHO EVRA [Suspect]
     Active Substance: ETHINYL ESTRADIOL\NORELGESTROMIN
     Indication: CONTRACEPTION
     Route: 062
     Dates: start: 201209, end: 201209
  2. ORTHO EVRA [Suspect]
     Active Substance: ETHINYL ESTRADIOL\NORELGESTROMIN
     Indication: CONTRACEPTION
     Dosage: 3 YEARS AGO
     Route: 062

REACTIONS (5)
  - Vulvovaginal swelling [Recovered/Resolved]
  - Rash pruritic [Recovered/Resolved]
  - Drug administered at inappropriate site [Unknown]
  - Wrong technique in drug usage process [Unknown]
  - Pain of skin [Recovered/Resolved]

NARRATIVE: CASE EVENT DATE: 201209
